FAERS Safety Report 5659469-7 (Version None)
Quarter: 2008Q1

REPORT INFORMATION
  Report Type: 
  Country: None (occurrence: None)
  Receive Date: 20080311
  Receipt Date: 20080305
  Transmission Date: 20080703
  Serious: Yes (Other)
  Sender: FDA-Public Use
  Company Number: PHHY2008BR02623

PATIENT
  Age: 78 Year
  Sex: Female
  Weight: 52 kg

DRUGS (13)
  1. EXELON [Suspect]
     Indication: DEMENTIA
     Route: 048
     Dates: start: 20061001
  2. EXELON [Suspect]
     Dosage: 12 ML DAILY, 2 MG/120 ML
     Route: 048
     Dates: start: 20071001
  3. GLUCOFORMIN [Concomitant]
     Indication: DIABETES MELLITUS
     Dosage: 2 TABLETS/DAY
     Route: 048
     Dates: start: 19980101
  4. OMEPRAZOLE [Concomitant]
     Indication: PROPHYLAXIS
     Dosage: 1 TABLET
     Route: 048
     Dates: start: 20060101
  5. PURAN T4 [Concomitant]
     Indication: THYROID DISORDER
     Dosage: 1 TABLET DAILY
     Route: 048
     Dates: start: 20070901
  6. CIPRAMIL [Concomitant]
     Indication: DEPRESSION
     Dosage: 1 TABLET DAILY
     Route: 048
     Dates: start: 20070901
  7. FENERGAN [Concomitant]
     Indication: SLEEP DISORDER
     Dosage: 1 TABLET DAILY
     Route: 048
     Dates: start: 20070901
  8. MELATONIN [Concomitant]
     Indication: SLEEP DISORDER
     Dosage: 3 TABLETS DAILY
     Route: 048
     Dates: start: 20070901
  9. MEMANTINE HCL [Concomitant]
     Indication: CONFUSIONAL STATE
     Dosage: 2 TABLETS DAILY
     Route: 048
     Dates: start: 20071201
  10. ASCORBIC ACID [Concomitant]
  11. PRANDIN [Concomitant]
     Indication: DIABETES MELLITUS
     Dosage: 1 DF, PRN
     Route: 048
  12. VITAMINIC [Concomitant]
     Dates: start: 20080101
  13. NUTRE ACTIVE [Concomitant]

REACTIONS (6)
  - BLOOD PRESSURE ABNORMAL [None]
  - BONE LESION [None]
  - CYSTOSTOMY [None]
  - ESCHAROTOMY [None]
  - NEUROGENIC BLADDER [None]
  - URINARY TRACT INFECTION [None]
